FAERS Safety Report 4849949-6 (Version None)
Quarter: 2005Q4

REPORT INFORMATION
  Report Type: 
  Country: None (occurrence: None)
  Receive Date: 20051101
  Receipt Date: 20050915
  Transmission Date: 20060501
  Serious: Yes (Other)
  Sender: FDA-Public Use
  Company Number: 200511665BBE

PATIENT
  Age: 58 Year
  Sex: Male
  Weight: 80 kg

DRUGS (8)
  1. GAMUNEX [Suspect]
     Indication: POLYNEUROPATHY
     Dosage: 80 G, TOTAL DAILY, INTRAVENOUS
     Route: 042
     Dates: start: 20050804
  2. NEUPOGEN [Concomitant]
  3. PROCRIT [Concomitant]
  4. PERCOCET [Concomitant]
  5. VITAMIN B-12 [Concomitant]
  6. NEURONTIN [Concomitant]
  7. COUMADIN [Concomitant]
  8. M.V.I. [Concomitant]

REACTIONS (5)
  - ANAPHYLACTIC SHOCK [None]
  - BLOOD PRESSURE DECREASED [None]
  - DYSPNOEA [None]
  - LOSS OF CONSCIOUSNESS [None]
  - URTICARIA GENERALISED [None]
